FAERS Safety Report 11757970 (Version 1)
Quarter: 2015Q4

REPORT INFORMATION
  Report Type: Spontaneous
  Country: CR (occurrence: CR)
  Receive Date: 20151120
  Receipt Date: 20151120
  Transmission Date: 20160304
  Serious: Yes (Death)
  Sender: FDA-Public Use
  Company Number: CR-ELI_LILLY_AND_COMPANY-CR201511005415

PATIENT
  Age: 61 Year
  Sex: Male

DRUGS (1)
  1. ALIMTA [Suspect]
     Active Substance: PEMETREXED DISODIUM
     Indication: LUNG CANCER METASTATIC
     Dosage: 1 DF, CYCLICAL
     Route: 065
     Dates: start: 2015, end: 201509

REACTIONS (1)
  - Death [Fatal]

NARRATIVE: CASE EVENT DATE: 201510
